FAERS Safety Report 24367300 (Version 1)
Quarter: 2024Q3

REPORT INFORMATION
  Report Type: Spontaneous
  Country: US (occurrence: None)
  Receive Date: 20240925
  Receipt Date: 20240925
  Transmission Date: 20241016
  Serious: Yes (unspecified)
  Sender: Public
  Company Number: None

PATIENT
  Age: 64 Year
  Sex: Male
  Weight: 112.1 kg

DRUGS (2)
  1. INGREZZA [Suspect]
     Active Substance: VALBENAZINE
     Indication: Tardive dyskinesia
     Dosage: FREQUENCY : AT BEDTIME;?
     Route: 048
     Dates: start: 20240913, end: 20240920
  2. BENZTROPINE [Suspect]
     Active Substance: BENZTROPINE
     Dates: start: 20240904, end: 20240912

REACTIONS (5)
  - Tremor [None]
  - Tremor [None]
  - Anxiety [None]
  - Depression [None]
  - Suicidal ideation [None]

NARRATIVE: CASE EVENT DATE: 20240917
